FAERS Safety Report 7861667-9 (Version None)
Quarter: 2011Q4

REPORT INFORMATION
  Report Type: 
  Country: None (occurrence: None)
  Receive Date: 20111027
  Receipt Date: 20111019
  Transmission Date: 20120403
  Serious: Yes (Hospitalization)
  Sender: FDA-Public Use
  Company Number: BE-ROCHE-1000497

PATIENT
  Sex: Male

DRUGS (14)
  1. INTERFERON ALFA [Suspect]
     Route: 058
     Dates: end: 20110921
  2. OMEPRAZOLE [Concomitant]
  3. INTERFERON ALFA [Suspect]
     Indication: RENAL CELL CARCINOMA
     Route: 058
     Dates: start: 20091118, end: 20110907
  4. LEVOTHYROXINE SODIUM [Concomitant]
  5. TAMSULOSIN HCL [Concomitant]
  6. AMLODIPINE BESYLATE [Concomitant]
  7. DURAGESIC-100 [Concomitant]
  8. AVASTIN [Suspect]
     Indication: PRODUCT USED FOR UNKNOWN INDICATION
     Dates: start: 20091118, end: 20100324
  9. MAGNESPASMYL [Concomitant]
  10. BISOPROLOL FUMARATE [Concomitant]
  11. FORLAX (BELGIUM) [Concomitant]
  12. LISINOPRIL [Concomitant]
  13. ASAFLOW [Concomitant]
  14. TPN [Concomitant]

REACTIONS (2)
  - METASTASES TO BONE [None]
  - DISEASE PROGRESSION [None]
